FAERS Safety Report 7485727-X (Version None)
Quarter: 2011Q2

REPORT INFORMATION
  Report Type: 
  Country: None (occurrence: None)
  Receive Date: 20110517
  Receipt Date: 20110512
  Transmission Date: 20111010
  Serious: Yes (Hospitalization)
  Sender: FDA-Public Use
  Company Number: GB-MERCK-1105GBR00045

PATIENT
  Age: 43 Year
  Sex: Female
  Weight: 115 kg

DRUGS (8)
  1. CETIRIZINE HYDROCHLORIDE [Concomitant]
     Route: 065
  2. CITALOPRAM HYDROBROMIDE [Concomitant]
     Route: 065
  3. LOSARTAN POTASSIUM [Concomitant]
     Route: 048
  4. JANUVIA [Suspect]
     Indication: DIABETES MELLITUS
     Route: 048
     Dates: start: 20110411, end: 20110430
  5. INSULIN ASPART, BIPHASIC ISOPHANE [INJECTION] [Concomitant]
     Route: 065
  6. LEVOTHYROXINE SODIUM [Concomitant]
     Route: 065
  7. LOPERAMIDE HYDROCHLORIDE [Concomitant]
     Route: 065
  8. SIMVASTATIN [Concomitant]
     Route: 048

REACTIONS (5)
  - NAUSEA [None]
  - HEADACHE [None]
  - VOMITING [None]
  - DYSPNOEA [None]
  - PARAESTHESIA [None]
